FAERS Safety Report 24645890 (Version 2)
Quarter: 2025Q3

REPORT INFORMATION
  Report Type: Spontaneous
  Country: GB (occurrence: GB)
  Receive Date: 20241121
  Receipt Date: 20250803
  Transmission Date: 20251020
  Serious: Yes (Other)
  Sender: ALEXION PHARMACEUTICALS
  Company Number: GB-ASTRAZENECA-202411GLO012591GB

PATIENT
  Age: 75 Year
  Sex: Female

DRUGS (1)
  1. OMEPRAZOLE [Suspect]
     Active Substance: OMEPRAZOLE
     Route: 065

REACTIONS (5)
  - Dyspnoea [Recovered/Resolved]
  - Myalgia [Unknown]
  - Renal impairment [Unknown]
  - Diarrhoea [Unknown]
  - Full blood count increased [Unknown]
